FAERS Safety Report 10621618 (Version 1)
Quarter: 2014Q4

REPORT INFORMATION
  Report Type: Spontaneous
  Country: US (occurrence: None)
  Receive Date: 20141201
  Receipt Date: 20141201
  Transmission Date: 20150529
  Serious: Yes (Other)
  Sender: FDA-Public Use
  Company Number: None

PATIENT
  Age: 58 Year
  Sex: Female
  Weight: 54.43 kg

DRUGS (1)
  1. BUPROPRION [Suspect]
     Active Substance: BUPROPION
     Indication: SMOKING CESSATION THERAPY
     Dosage: 1/DAY-3/DAYS, 2/DAY 8H APART
     Route: 048
     Dates: start: 20141109, end: 20141115

REACTIONS (8)
  - Disorientation [None]
  - Confusional state [None]
  - Balance disorder [None]
  - Feeling of body temperature change [None]
  - Memory impairment [None]
  - Hypersensitivity [None]
  - Blood pressure increased [None]
  - Dyspnoea [None]

NARRATIVE: CASE EVENT DATE: 20141115
